FAERS Safety Report 14531188 (Version 1)
Quarter: 2018Q1

REPORT INFORMATION
  Report Type: Report from Study
  Country: JP (occurrence: JP)
  Receive Date: 20180214
  Receipt Date: 20180214
  Transmission Date: 20180509
  Serious: Yes (Other)
  Sender: FDA-Public Use
  Company Number: JP-AMGEN-JPNNI2018020309

PATIENT
  Age: 61 Year
  Sex: Female
  Weight: 55 kg

DRUGS (23)
  1. DOXORUBICIN HYDROCHLORIDE. [Suspect]
     Active Substance: DOXORUBICIN HYDROCHLORIDE
     Dosage: 94 MG, UNK
     Route: 041
     Dates: start: 20170426, end: 20170426
  2. DOXORUBICIN HYDROCHLORIDE. [Suspect]
     Active Substance: DOXORUBICIN HYDROCHLORIDE
     Dosage: 94 MG, UNK
     Route: 041
     Dates: start: 20170517, end: 20170517
  3. ENDOXAN                            /00021101/ [Suspect]
     Active Substance: CYCLOPHOSPHAMIDE
     Indication: BREAST CANCER
     Dosage: UNK
     Route: 041
  4. ENDOXAN                            /00021101/ [Suspect]
     Active Substance: CYCLOPHOSPHAMIDE
     Dosage: 940 MG, UNK
     Route: 041
     Dates: start: 20170405, end: 20170405
  5. ENDOXAN                            /00021101/ [Suspect]
     Active Substance: CYCLOPHOSPHAMIDE
     Dosage: 940 MG, UNK
     Route: 041
     Dates: start: 20170426, end: 20170426
  6. ENDOXAN                            /00021101/ [Suspect]
     Active Substance: CYCLOPHOSPHAMIDE
     Dosage: 940 MG, UNK
     Route: 041
     Dates: start: 20170517, end: 20170517
  7. DOCETAXEL. [Suspect]
     Active Substance: DOCETAXEL
     Dosage: 117 MG, UNK
     Route: 041
     Dates: start: 20170628, end: 20170628
  8. HERCEPTIN [Suspect]
     Active Substance: TRASTUZUMAB
     Dosage: 330 MG, UNK
     Route: 041
     Dates: start: 20170628, end: 20170628
  9. HERCEPTIN [Suspect]
     Active Substance: TRASTUZUMAB
     Dosage: 330 MG, UNK
     Route: 041
     Dates: start: 20170719, end: 20170719
  10. HERCEPTIN [Suspect]
     Active Substance: TRASTUZUMAB
     Indication: BREAST CANCER
     Dosage: 440 MG, UNK
     Route: 041
     Dates: start: 20170607, end: 20170607
  11. PEGFILGRASTIM [Suspect]
     Active Substance: PEGFILGRASTIM
     Dosage: 3.6 MG, UNK
     Route: 058
     Dates: start: 20170629, end: 20170629
  12. DOCETAXEL. [Suspect]
     Active Substance: DOCETAXEL
     Indication: BREAST CANCER
     Dosage: 117 MG, UNK
     Route: 041
     Dates: start: 20170607, end: 20170607
  13. PEGFILGRASTIM [Suspect]
     Active Substance: PEGFILGRASTIM
     Dosage: 3.6 MG, UNK
     Route: 058
     Dates: start: 20170518, end: 20170518
  14. PEGFILGRASTIM [Suspect]
     Active Substance: PEGFILGRASTIM
     Dosage: 3.6 MG, UNK
     Route: 058
     Dates: start: 20170720, end: 20170720
  15. DEXART [Concomitant]
     Active Substance: DEXAMETHASONE SODIUM PHOSPHATE
     Dosage: UNK
     Route: 065
  16. DOXORUBICIN HYDROCHLORIDE. [Suspect]
     Active Substance: DOXORUBICIN HYDROCHLORIDE
     Dosage: 94 MG, UNK
     Route: 041
     Dates: start: 20170405, end: 20170405
  17. DOCETAXEL. [Suspect]
     Active Substance: DOCETAXEL
     Dosage: 117 MG, UNK
     Route: 041
     Dates: start: 20170719, end: 20170719
  18. ALOXI [Concomitant]
     Active Substance: PALONOSETRON HYDROCHLORIDE
     Dosage: UNK
     Route: 042
  19. PROEMEND [Concomitant]
     Active Substance: FOSAPREPITANT
     Dosage: UNK
     Route: 041
  20. PEGFILGRASTIM [Suspect]
     Active Substance: PEGFILGRASTIM
     Indication: COLONY STIMULATING FACTOR PROPHYLAXIS
     Dosage: 3.6 MG, UNK
     Route: 058
     Dates: start: 20170406, end: 20170406
  21. PEGFILGRASTIM [Suspect]
     Active Substance: PEGFILGRASTIM
     Dosage: 3.6 MG, UNK
     Route: 058
     Dates: start: 20170427, end: 20170427
  22. PEGFILGRASTIM [Suspect]
     Active Substance: PEGFILGRASTIM
     Dosage: 3.6 MG, UNK
     Route: 058
     Dates: start: 20170608, end: 20170608
  23. DOXORUBICIN HYDROCHLORIDE. [Suspect]
     Active Substance: DOXORUBICIN HYDROCHLORIDE
     Indication: BREAST CANCER
     Dosage: UNK
     Route: 041

REACTIONS (5)
  - Febrile neutropenia [Recovered/Resolved]
  - Febrile neutropenia [Recovered/Resolved]
  - Febrile neutropenia [Recovered/Resolved]
  - Febrile neutropenia [Recovered/Resolved]
  - Febrile neutropenia [Recovered/Resolved]

NARRATIVE: CASE EVENT DATE: 20170430
